FAERS Safety Report 14141477 (Version 4)
Quarter: 2018Q2

REPORT INFORMATION
  Report Type: Spontaneous
  Country: FR (occurrence: FR)
  Receive Date: 20171030
  Receipt Date: 20180430
  Transmission Date: 20180711
  Serious: Yes (Hospitalization)
  Sender: FDA-Public Use
  Company Number: FR-TEVA-819067ROM

PATIENT
  Age: 86 Year
  Sex: Female
  Weight: 65 kg

DRUGS (6)
  1. OXAZEPAM. [Concomitant]
     Active Substance: OXAZEPAM
     Indication: AGITATION
     Route: 048
     Dates: start: 20170926
  2. TRIATEC (RAMIPRIL) [Concomitant]
     Active Substance: RAMIPRIL
     Indication: HYPERTENSION
     Route: 048
     Dates: start: 20170926
  3. ZOPICLONE [Concomitant]
     Active Substance: ZOPICLONE
     Indication: SLEEP DISORDER THERAPY
     Route: 048
     Dates: start: 20170926
  4. BACTRIM [Concomitant]
     Active Substance: SULFAMETHOXAZOLE\TRIMETHOPRIM
     Route: 048
     Dates: start: 20170926
  5. TEVAGRASTIM 30 MUI/0.5 ML [Suspect]
     Active Substance: FILGRASTIM
     Dosage: 30 MU DAILY;
     Route: 058
     Dates: start: 20171012, end: 20171019
  6. PAROXETINE. [Concomitant]
     Active Substance: PAROXETINE
     Indication: ANTIDEPRESSANT THERAPY
     Route: 048
     Dates: start: 20170926

REACTIONS (14)
  - Myelocyte count [Recovered/Resolved]
  - Polycythaemia [Not Recovered/Not Resolved]
  - Blood albumin decreased [Not Recovered/Not Resolved]
  - Oedema peripheral [Recovered/Resolved]
  - Neutrophil count increased [Recovered/Resolved]
  - Overdose [Unknown]
  - Cholestasis [Recovering/Resolving]
  - Wrong drug administered [Unknown]
  - Metamyelocyte count [Recovered/Resolved]
  - Ascites [Not Recovered/Not Resolved]
  - Asthenia [Recovered/Resolved]
  - Monocyte count abnormal [Recovered/Resolved]
  - Gamma-glutamyltransferase increased [Not Recovered/Not Resolved]
  - Hyperleukocytosis [Recovered/Resolved]

NARRATIVE: CASE EVENT DATE: 201710
